FAERS Safety Report 20110653 (Version 1)
Quarter: 2021Q4

REPORT INFORMATION
  Report Type: Spontaneous
  Country: FR (occurrence: FR)
  Receive Date: 20211124
  Receipt Date: 20211124
  Transmission Date: 20220303
  Serious: Yes (Other)
  Sender: FDA-Public Use
  Company Number: None

PATIENT
  Age: 64 Year
  Sex: Male
  Weight: 59 kg

DRUGS (5)
  1. SPIRONOLACTONE [Suspect]
     Active Substance: SPIRONOLACTONE
     Indication: Cardiac disorder
     Dosage: 75 MG
     Route: 048
     Dates: start: 20210923, end: 20210928
  2. IOBITRIDOL [Suspect]
     Active Substance: IOBITRIDOL
     Indication: Computerised tomogram
     Dosage: UNKNOWN
     Route: 041
     Dates: start: 20210929, end: 20210929
  3. NIMOTOP [Suspect]
     Active Substance: NIMODIPINE
     Indication: Cardiac disorder
     Dosage: 10 MG
     Route: 041
     Dates: start: 20210923, end: 20210928
  4. MEROPENEM [Suspect]
     Active Substance: MEROPENEM
     Indication: Septic shock
     Dosage: 2 G
     Route: 042
     Dates: start: 20210920, end: 20210927
  5. PANTOPRAZOLE [Suspect]
     Active Substance: PANTOPRAZOLE
     Indication: Prophylaxis against gastrointestinal ulcer
     Dosage: 40 MG
     Route: 041
     Dates: start: 20210912, end: 20210927

REACTIONS (1)
  - Toxic skin eruption [Unknown]

NARRATIVE: CASE EVENT DATE: 20210929
